FAERS Safety Report 25987839 (Version 1)
Quarter: 2025Q4

REPORT INFORMATION
  Report Type: Spontaneous
  Country: EU (occurrence: EU)
  Receive Date: 20251103
  Receipt Date: 20251103
  Transmission Date: 20260117
  Serious: Yes (Death, Life-Threatening, Other)
  Sender: OXFORD PHARMACEUTICALS, LLC
  Company Number: EU-Oxford Pharmaceuticals, LLC-2187763

PATIENT
  Age: 26 Year
  Sex: Female

DRUGS (6)
  1. PAROXETINE HYDROCHLORIDE [Suspect]
     Active Substance: PAROXETINE HYDROCHLORIDE
     Indication: Suicidal ideation
  2. AGOMELATINE [Suspect]
     Active Substance: AGOMELATINE
  3. IBUPROFEN [Suspect]
     Active Substance: IBUPROFEN
  4. CAFFEINE [Suspect]
     Active Substance: CAFFEINE
  5. ASPIRIN [Suspect]
     Active Substance: ASPIRIN
  6. ACETAMINOPHEN [Suspect]
     Active Substance: ACETAMINOPHEN

REACTIONS (2)
  - Serotonin syndrome [Fatal]
  - Intentional overdose [Unknown]
